FAERS Safety Report 11936404 (Version 1)
Quarter: 2016Q1

REPORT INFORMATION
  Report Type: Report from Study
  Country: US (occurrence: US)
  Receive Date: 20160121
  Receipt Date: 20160121
  Transmission Date: 20160526
  Serious: Yes (Hospitalization)
  Sender: FDA-Public Use
  Company Number: US-BIOGEN-2015BI090765

PATIENT
  Age: 49 Year
  Sex: Female

DRUGS (3)
  1. TYSABRI [Suspect]
     Active Substance: NATALIZUMAB
     Indication: MULTIPLE SCLEROSIS
     Route: 042
     Dates: start: 2012
  2. TYSABRI [Suspect]
     Active Substance: NATALIZUMAB
     Route: 042
     Dates: start: 20130226, end: 201511
  3. PLAQUENIL [Concomitant]
     Active Substance: HYDROXYCHLOROQUINE SULFATE
     Indication: PRODUCT USED FOR UNKNOWN INDICATION
     Route: 065

REACTIONS (11)
  - Burning sensation [Unknown]
  - Herpes simplex meningitis [Recovered/Resolved]
  - Mammoplasty [Recovered/Resolved]
  - Stress [Not Recovered/Not Resolved]
  - Panic attack [Recovered/Resolved]
  - Incision site erythema [Unknown]
  - Impaired healing [Unknown]
  - Incision site inflammation [Unknown]
  - Incision site pain [Unknown]
  - Pineal gland cyst [Not Recovered/Not Resolved]
  - Adverse event [Unknown]

NARRATIVE: CASE EVENT DATE: 20150520
